FAERS Safety Report 5967762-3 (Version None)
Quarter: 2008Q4

REPORT INFORMATION
  Report Type: 
  Country: None (occurrence: None)
  Receive Date: 20081126
  Receipt Date: 20081125
  Transmission Date: 20090506
  Serious: Yes (Life-Threatening, Hospitalization)
  Sender: FDA-Public Use
  Company Number: DE-JNJFOC-20081105648

PATIENT
  Age: 50 Year
  Sex: Male

DRUGS (4)
  1. TAVANIC [Suspect]
     Indication: INFLUENZA LIKE ILLNESS
     Route: 048
  2. TAVANIC [Suspect]
     Indication: RASH
     Route: 048
  3. NOVALGIN [Suspect]
     Indication: INFLUENZA LIKE ILLNESS
     Route: 065
  4. NOVALGIN [Suspect]
     Indication: RASH
     Route: 065

REACTIONS (6)
  - BLOOD IMMUNOGLOBULIN G INCREASED [None]
  - COAGULATION FACTOR DECREASED [None]
  - CONDITION AGGRAVATED [None]
  - GENERAL PHYSICAL HEALTH DETERIORATION [None]
  - MULTI-ORGAN FAILURE [None]
  - TRANSAMINASES INCREASED [None]
